FAERS Safety Report 24857566 (Version 3)
Quarter: 2025Q1

REPORT INFORMATION
  Report Type: Spontaneous
  Country: JP (occurrence: JP)
  Receive Date: 20250117
  Receipt Date: 20250228
  Transmission Date: 20250409
  Serious: Yes (Death, Disabling)
  Sender: AKEBIA THERAPEUTICS
  Company Number: JP-MTPC-MTPC2025-0000666

PATIENT
  Sex: Male
  Weight: 37 kg

DRUGS (9)
  1. VADADUSTAT [Suspect]
     Active Substance: VADADUSTAT
     Indication: Nephrogenic anaemia
     Dosage: 300 MILLIGRAM, QD
     Route: 048
     Dates: start: 20220308
  2. VADADUSTAT [Suspect]
     Active Substance: VADADUSTAT
     Route: 048
  3. VADADUSTAT [Suspect]
     Active Substance: VADADUSTAT
     Dosage: 600 MILLIGRAM, QD
     Route: 048
  4. VADADUSTAT [Suspect]
     Active Substance: VADADUSTAT
     Dosage: 300 MILLIGRAM, QD
     Route: 048
     Dates: end: 20241224
  5. ALFACALCIDOL [Concomitant]
     Active Substance: ALFACALCIDOL
     Indication: Osteoporosis
     Dosage: 0.25 MICROGRAM, QD
     Route: 048
     Dates: start: 20160615, end: 20250112
  6. ELOBIXIBAT [Concomitant]
     Active Substance: ELOBIXIBAT
     Indication: Constipation
     Dosage: 15 MILLIGRAM, QD
     Route: 048
     Dates: start: 20220212, end: 20250112
  7. LANSOPRAZOLE [Concomitant]
     Active Substance: LANSOPRAZOLE
     Indication: Chronic gastritis
     Dosage: 15 MILLIGRAM, QD
     Route: 048
     Dates: start: 20250103, end: 20250112
  8. PRASUGREL HYDROCHLORIDE [Concomitant]
     Active Substance: PRASUGREL HYDROCHLORIDE
     Indication: Coronary artery stenosis
     Dosage: 3.75 MILLIGRAM, QD
     Route: 048
     Dates: end: 20250112
  9. DARBEPOETIN ALFA [Concomitant]
     Active Substance: DARBEPOETIN ALFA
     Indication: Product used for unknown indication
     Route: 065
     Dates: end: 20220303

REACTIONS (1)
  - Hypothyroidism [Fatal]

NARRATIVE: CASE EVENT DATE: 20220616
